FAERS Safety Report 24957980 (Version 1)
Quarter: 2025Q1

REPORT INFORMATION
  Report Type: Spontaneous
  Country: AU (occurrence: AU)
  Receive Date: 20250212
  Receipt Date: 20250212
  Transmission Date: 20250409
  Serious: No
  Sender: ASTELLAS
  Company Number: AU-ASTELLAS-2025-AER-008485

PATIENT
  Sex: Female

DRUGS (1)
  1. VEOZAH [Suspect]
     Active Substance: FEZOLINETANT
     Indication: Night sweats
     Route: 050

REACTIONS (1)
  - Diarrhoea [Unknown]
